APPROVED DRUG PRODUCT: RASAGILINE MESYLATE
Active Ingredient: RASAGILINE MESYLATE
Strength: EQ 1MG BASE
Dosage Form/Route: TABLET;ORAL
Application: A201823 | Product #002
Applicant: WATSON LABORATORIES INC
Approved: Jul 1, 2013 | RLD: No | RS: No | Type: DISCN